FAERS Safety Report 6561762-0 (Version None)
Quarter: 2010Q1

REPORT INFORMATION
  Report Type: 
  Country: None (occurrence: None)
  Receive Date: 20100130
  Receipt Date: 20091028
  Transmission Date: 20100710
  Serious: Yes (Hospitalization)
  Sender: FDA-Public Use
  Company Number: US-ABBOTT-09P-163-0605299-00

PATIENT
  Sex: Female

DRUGS (1)
  1. HUMIRA [Suspect]
     Indication: RHEUMATOID ARTHRITIS
     Dosage: EOW
     Route: 058
     Dates: start: 20071201

REACTIONS (4)
  - ARTHROPATHY [None]
  - FEMUR FRACTURE [None]
  - JOINT INJURY [None]
  - PAIN [None]
